FAERS Safety Report 9072951 (Version 1)
Quarter: 2013Q1

REPORT INFORMATION
  Report Type: Report from Study
  Country: US (occurrence: US)
  Receive Date: 20130129
  Receipt Date: 20130129
  Transmission Date: 20140127
  Serious: No
  Sender: FDA-Public Use
  Company Number: US-ABBOTT-12P-163-0930754-00

PATIENT
  Sex: Male

DRUGS (4)
  1. HUMIRA 40 MG/0.8 ML PEN [Suspect]
     Indication: PSORIASIS
  2. DOVONEX [Concomitant]
     Indication: PSORIASIS
     Dosage: DAILY
  3. TRIAMCINOLONE [Concomitant]
     Indication: PSORIASIS
     Dosage: DAILY
  4. HYDROCORTISONE [Concomitant]
     Indication: PSORIASIS
     Dosage: DAILY

REACTIONS (4)
  - Device malfunction [Unknown]
  - Drug dose omission [Unknown]
  - Injection site haemorrhage [Not Recovered/Not Resolved]
  - Injection site pain [Not Recovered/Not Resolved]
